FAERS Safety Report 7371060-3 (Version None)
Quarter: 2011Q1

REPORT INFORMATION
  Report Type: 
  Country: None (occurrence: None)
  Receive Date: 20110318
  Receipt Date: 20110318
  Transmission Date: 20110831
  Serious: Yes (Life-Threatening, Hospitalization)
  Sender: FDA-Public Use
  Company Number: None

PATIENT
  Age: 55 Year
  Sex: Female

DRUGS (8)
  1. DIPHENHYDRAMINE HCL [Concomitant]
  2. LORAZEPAM [Concomitant]
  3. DONEPEZIL HCL [Concomitant]
  4. METOPROLOL [Concomitant]
  5. GABAPENTIN [Concomitant]
  6. ZIPRASIDONE HCL [Suspect]
     Indication: AGITATION
     Dosage: 20 MG BID PO
     Route: 048
     Dates: start: 20110108, end: 20110109
  7. SIMVASTATIN [Concomitant]
  8. LEVOTHYROXINE [Concomitant]

REACTIONS (10)
  - HEART RATE DECREASED [None]
  - RESPIRATORY DISTRESS [None]
  - CYANOSIS [None]
  - ANXIETY [None]
  - DYSPNOEA [None]
  - DRUG HYPERSENSITIVITY [None]
  - SWOLLEN TONGUE [None]
  - MUSCULOSKELETAL STIFFNESS [None]
  - PALLOR [None]
  - EXTRAPYRAMIDAL DISORDER [None]
